FAERS Safety Report 6057251-2 (Version None)
Quarter: 2009Q1

REPORT INFORMATION
  Report Type: 
  Country: None (occurrence: None)
  Receive Date: 20090129
  Receipt Date: 20080528
  Transmission Date: 20090719
  Serious: No
  Sender: FDA-Public Use
  Company Number: A0731813A

PATIENT
  Sex: Female

DRUGS (1)
  1. WELLBUTRIN [Suspect]
     Indication: DRUG USE FOR UNKNOWN INDICATION
     Route: 048
     Dates: end: 20061027

REACTIONS (7)
  - ANXIETY [None]
  - BINGE EATING [None]
  - DEPRESSION [None]
  - FATIGUE [None]
  - IMPAIRED SELF-CARE [None]
  - LETHARGY [None]
  - TACHYPHRENIA [None]
